FAERS Safety Report 6081286-7 (Version None)
Quarter: 2009Q1

REPORT INFORMATION
  Report Type: 
  Country: None (occurrence: None)
  Receive Date: 20090218
  Receipt Date: 20090210
  Transmission Date: 20090719
  Serious: Yes (Hospitalization, Other)
  Sender: FDA-Public Use
  Company Number: GB-RANBAXY-2009RR-21594

PATIENT

DRUGS (1)
  1. IBUPROFEN [Suspect]
     Dosage: UNK

REACTIONS (2)
  - BLEEDING TIME PROLONGED [None]
  - HAEMORRHAGE INTRACRANIAL [None]
